FAERS Safety Report 17641409 (Version 1)
Quarter: 2020Q2

REPORT INFORMATION
  Report Type: Report from Study
  Country: CN (occurrence: CN)
  Receive Date: 20200408
  Receipt Date: 20200408
  Transmission Date: 20200713
  Serious: Yes (Other)
  Sender: FDA-Public Use
  Company Number: CN-ROCHE-2556740

PATIENT

DRUGS (1)
  1. CAPECITABINE. [Suspect]
     Active Substance: CAPECITABINE
     Indication: COLORECTAL CANCER METASTATIC
     Route: 065

REACTIONS (11)
  - Vomiting [Unknown]
  - Neutropenia [Unknown]
  - Palmar-plantar erythrodysaesthesia syndrome [Unknown]
  - Diarrhoea [Unknown]
  - Nephropathy toxic [Unknown]
  - Leukopenia [Unknown]
  - Anaemia [Unknown]
  - Nausea [Unknown]
  - Thrombocytopenia [Unknown]
  - Cardiotoxicity [Unknown]
  - Hepatotoxicity [Unknown]
